FAERS Safety Report 9127084 (Version 1)
Quarter: 2013Q1

REPORT INFORMATION
  Report Type: Spontaneous
  Country: US (occurrence: US)
  Receive Date: 20130228
  Receipt Date: 20130228
  Transmission Date: 20140127
  Serious: Yes (Hospitalization, Other)
  Sender: FDA-Public Use
  Company Number: US-BAYER-2013-024535

PATIENT
  Age: 80 Year
  Sex: Male

DRUGS (4)
  1. ACETYLSALICYLIC ACID({=100 MG) [Suspect]
     Indication: ATRIAL FIBRILLATION
     Dosage: 81 MG, DAILY
  2. ACETYLSALICYLIC ACID({=100 MG) [Interacting]
     Indication: INTRACARDIAC THROMBUS
  3. DABIGATRAN [Interacting]
     Indication: ATRIAL FIBRILLATION
     Dosage: 150 MG, BID
  4. DABIGATRAN [Interacting]
     Indication: INTRACARDIAC THROMBUS

REACTIONS (5)
  - Haemothorax [None]
  - Respiratory disorder [Not Recovered/Not Resolved]
  - Fall [None]
  - Rib fracture [None]
  - Pulmonary contusion [None]
